FAERS Safety Report 6962078-0 (Version None)
Quarter: 2010Q3

REPORT INFORMATION
  Report Type: 
  Country: None (occurrence: None)
  Receive Date: 20100902
  Receipt Date: 20100823
  Transmission Date: 20110219
  Serious: Yes (Other)
  Sender: FDA-Public Use
  Company Number: NZ-JNJFOC-20080203520

PATIENT
  Sex: Female
  Weight: 74 kg

DRUGS (21)
  1. GOLIMUMAB [Suspect]
     Indication: RHEUMATOID ARTHRITIS
     Dosage: WEEK 28
     Route: 058
  2. GOLIMUMAB [Suspect]
     Dosage: WEEK 24
     Route: 058
  3. GOLIMUMAB [Suspect]
     Dosage: WEEK 20
     Route: 058
  4. GOLIMUMAB [Suspect]
     Dosage: WEEK 16
     Route: 058
  5. GOLIMUMAB [Suspect]
     Dosage: WEEK 12
     Route: 058
  6. GOLIMUMAB [Suspect]
     Dosage: WEEK 8
     Route: 058
  7. GOLIMUMAB [Suspect]
     Dosage: WEEK 4
     Route: 058
  8. GOLIMUMAB [Suspect]
     Dosage: WEEK 0
     Route: 058
  9. GOLIMUMAB [Suspect]
     Dosage: WEEK 32
     Route: 058
  10. GOLIMUMAB [Suspect]
     Dosage: WEEK 36
     Route: 058
  11. GOLIMUMAB [Suspect]
     Dosage: WEEK 44
     Route: 058
  12. GOLIMUMAB [Suspect]
     Dosage: WEEK 40
     Route: 058
  13. GOLIMUMAB [Suspect]
     Dosage: WEEK 48
     Route: 058
  14. PLACEBO [Suspect]
     Indication: RHEUMATOID ARTHRITIS
     Route: 048
  15. PLACEBO [Suspect]
     Route: 048
  16. FOLIC ACID [Concomitant]
     Route: 048
  17. NAPROXEN [Concomitant]
     Route: 048
  18. CALCIUM [Concomitant]
     Route: 048
  19. CHOLECALCIFEROL [Concomitant]
     Route: 048
  20. PAROXETINE HCL [Concomitant]
     Route: 048
  21. SIMVASTATIN [Concomitant]
     Route: 048

REACTIONS (1)
  - SQUAMOUS CELL CARCINOMA [None]
